FAERS Safety Report 9267345 (Version 2)
Quarter: 2013Q3

REPORT INFORMATION
  Report Type: Spontaneous
  Country: US (occurrence: US)
  Receive Date: 20130502
  Receipt Date: 20130812
  Transmission Date: 20140515
  Serious: Yes (Other)
  Sender: FDA-Public Use
  Company Number: US-BAYER-2013-052607

PATIENT
  Age: 29 Year
  Sex: Female

DRUGS (2)
  1. YASMIN [Suspect]
     Dosage: UNK
     Dates: start: 20070417
  2. OCELLA [Suspect]
     Dosage: UNK
     Dates: start: 20070419, end: 20091218

REACTIONS (11)
  - Deep vein thrombosis [None]
  - Pain in extremity [None]
  - Thrombosis [None]
  - Vasculitis [None]
  - Injury [None]
  - General physical health deterioration [None]
  - Pain [None]
  - Pain [None]
  - Emotional distress [None]
  - Anxiety [None]
  - Anhedonia [None]
